FAERS Safety Report 6203602-5 (Version None)
Quarter: 2009Q2

REPORT INFORMATION
  Report Type: 
  Country: None (occurrence: None)
  Receive Date: 20090522
  Receipt Date: 20090522
  Transmission Date: 20091009
  Serious: Yes (Hospitalization)
  Sender: FDA-Public Use
  Company Number: None

PATIENT
  Age: 49 Year
  Sex: Male
  Weight: 134.2 kg

DRUGS (8)
  1. WARFARIN SODIUM [Suspect]
     Indication: DEEP VEIN THROMBOSIS
     Dosage: 4MG ALT 5MG DAILY PO CHRONIC
     Route: 048
  2. CELLCEPT [Concomitant]
  3. GENGRAF [Concomitant]
  4. LASIX [Concomitant]
  5. LIPITOR [Concomitant]
  6. NOVOLIN N [Concomitant]
  7. NOVOLOG [Concomitant]
  8. PREDNISONE [Concomitant]

REACTIONS (2)
  - ASTHENIA [None]
  - EXTRADURAL HAEMATOMA [None]
